FAERS Safety Report 8433295-8 (Version None)
Quarter: 2012Q2

REPORT INFORMATION
  Report Type: 
  Country: None (occurrence: None)
  Receive Date: 20120613
  Receipt Date: 20120604
  Transmission Date: 20120825
  Serious: Yes (Death)
  Sender: FDA-Public Use
  Company Number: US-MYLANLABS-2009S1012987

PATIENT
  Age: 43 Year
  Sex: Female
  Weight: 75.75 kg

DRUGS (6)
  1. AMBIEN [Concomitant]
  2. DILANTIN [Concomitant]
  3. DARVOCET [Concomitant]
  4. XANAX [Concomitant]
  5. FENTANYL-100 [Suspect]
     Indication: BACK PAIN
     Dosage: CHANGE Q72HR
     Route: 062
     Dates: start: 20081001, end: 20081026
  6. LORTAB [Concomitant]

REACTIONS (2)
  - NIGHTMARE [None]
  - TOXICITY TO VARIOUS AGENTS [None]
